FAERS Safety Report 8521663-5 (Version None)
Quarter: 2012Q3

REPORT INFORMATION
  Report Type: 
  Country: None (occurrence: None)
  Receive Date: 20120719
  Receipt Date: 20120717
  Transmission Date: 20120928
  Serious: Yes (Hospitalization, Other)
  Sender: FDA-Public Use
  Company Number: PHHY2011DE103532

PATIENT
  Age: 57 Year
  Sex: Female
  Weight: 52 kg

DRUGS (2)
  1. ZOMETA [Suspect]
     Indication: METASTASES TO BONE
     Dosage: 4 MG, EVERY 4 WEEK
     Route: 042
     Dates: start: 20091001, end: 20111201
  2. FEMARA [Suspect]
     Indication: BREAST CANCER
     Dosage: 1 DF, UNK
     Dates: start: 20091001, end: 20111201

REACTIONS (10)
  - PANCYTOPENIA [None]
  - DRY MOUTH [None]
  - MYELOFIBROSIS [None]
  - MYALGIA [None]
  - MENINGEAL DISORDER [None]
  - PYREXIA [None]
  - PARAESTHESIA [None]
  - COLITIS [None]
  - SPLENOMEGALY [None]
  - BONE PAIN [None]
